FAERS Safety Report 10818256 (Version 1)
Quarter: 2015Q1

REPORT INFORMATION
  Report Type: Report from Study
  Country: US (occurrence: None)
  Receive Date: 20150213
  Receipt Date: 20150213
  Transmission Date: 20150721
  Serious: Yes (Hospitalization)
  Sender: FDA-Public Use
  Company Number: 2015BI014091

PATIENT
  Age: 42 Year
  Sex: Female

DRUGS (1)
  1. AVONEX [Suspect]
     Active Substance: INTERFERON BETA-1A
     Indication: MULTIPLE SCLEROSIS
     Route: 030
     Dates: start: 19991001, end: 20061101

REACTIONS (5)
  - Dysphagia [None]
  - Oropharyngeal pain [None]
  - Swelling face [None]
  - Local swelling [None]
  - Lip swelling [None]

NARRATIVE: CASE EVENT DATE: 2000
